FAERS Safety Report 17946291 (Version 1)
Quarter: 2020Q2

REPORT INFORMATION
  Report Type: Spontaneous
  Country: US (occurrence: US)
  Receive Date: 20200625
  Receipt Date: 20200625
  Transmission Date: 20200714
  Serious: Yes (Death, Other)
  Sender: FDA-Public Use
  Company Number: US-ENDO PHARMACEUTICALS INC-2020-004370

PATIENT
  Age: 47 Year

DRUGS (2)
  1. METOPROLOL. [Suspect]
     Active Substance: METOPROLOL
     Indication: PRODUCT USED FOR UNKNOWN INDICATION
     Dosage: UNK UNKNOWN, UNKNOWN
     Route: 048
  2. DILTIAZEM HYDROCHLORIDE. [Suspect]
     Active Substance: DILTIAZEM HYDROCHLORIDE
     Indication: PRODUCT USED FOR UNKNOWN INDICATION
     Dosage: UNK UNKNOWN, UNKNOWN
     Route: 048

REACTIONS (13)
  - Acidosis [Unknown]
  - Blood creatinine increased [Unknown]
  - Ammonia abnormal [Unknown]
  - Alanine aminotransferase abnormal [Unknown]
  - Coma [Unknown]
  - Cardiac arrest [Unknown]
  - Hypotension [Unknown]
  - Hyperglycaemia [Unknown]
  - Bradycardia [Unknown]
  - Aspartate aminotransferase abnormal [Unknown]
  - Death [Fatal]
  - Electrolyte imbalance [Unknown]
  - Vomiting [Unknown]

NARRATIVE: CASE EVENT DATE: 201411
